FAERS Safety Report 4917068-6 (Version None)
Quarter: 2006Q1

REPORT INFORMATION
  Report Type: 
  Country: None (occurrence: None)
  Receive Date: 20060216
  Receipt Date: 20060216
  Transmission Date: 20060701
  Serious: Yes (Other)
  Sender: FDA-Public Use
  Company Number: None

PATIENT
  Age: 80 Year
  Sex: Male
  Weight: 73.9 kg

DRUGS (14)
  1. DURAGESIC-25 [Suspect]
  2. FUROSEMIDE [Concomitant]
  3. ROSIGLITAZONE MALEATE [Concomitant]
  4. RISPERIDONE [Concomitant]
  5. ZOLPIDEM TARTRATE [Concomitant]
  6. ABSORBASE [Concomitant]
  7. LORAZEPAM [Concomitant]
  8. MUPIROCIN [Concomitant]
  9. OMEPRAZOLE [Concomitant]
  10. SERTRALINE HCL [Concomitant]
  11. TRAZODONE HCL [Concomitant]
  12. FENTANYL CITRATE [Concomitant]
  13. MORPHINE [Concomitant]
  14. PNEUMOCOCCAL POLYSACC VACCINE [Concomitant]

REACTIONS (1)
  - LETHARGY [None]
